FAERS Safety Report 9201285 (Version 1)
Quarter: 2013Q2

REPORT INFORMATION
  Report Type: Spontaneous
  Country: IT (occurrence: IT)
  Receive Date: 20130401
  Receipt Date: 20130401
  Transmission Date: 20140414
  Serious: Yes (Hospitalization)
  Sender: FDA-Public Use
  Company Number: PHHY2013IT030688

PATIENT
  Sex: Male

DRUGS (2)
  1. ZOMETA [Suspect]
     Indication: PROSTATE CANCER
     Dosage: 4MG/5ML
     Dates: start: 20120201, end: 20130301
  2. TAXOTERE [Concomitant]
     Indication: PROSTATE CANCER
     Dosage: 110 MG,
     Dates: start: 20121203, end: 20130208

REACTIONS (1)
  - Osteonecrosis of jaw [Unknown]
